FAERS Safety Report 24534055 (Version 1)
Quarter: 2024Q4

REPORT INFORMATION
  Report Type: Spontaneous
  Country: US (occurrence: US)
  Receive Date: 20241022
  Receipt Date: 20241022
  Transmission Date: 20250115
  Serious: No
  Sender: BRISTOL-MYERS SQUIBB COMPANY
  Company Number: US-BRISTOL-MYERS SQUIBB COMPANY-2024-166045

PATIENT
  Age: 79 Year
  Sex: Female

DRUGS (2)
  1. AUGTYRO [Suspect]
     Active Substance: REPOTRECTINIB
     Indication: Product used for unknown indication
     Dosage: TAKE 2 CAPSULES BY MOUTH ONCE A DAY FOR 14 DAYS, THEN TAKE 2 CAPSULES BY MOUTH TWICE A DAY FOR 14 DA
     Route: 048
  2. AUGTYRO [Suspect]
     Active Substance: REPOTRECTINIB
     Dosage: TAKE 2 CAPSULES BY MOUTH ONCE A DAY FOR 14 DAYS, THEN TAKE 2 CAPSULES BY MOUTH TWICE A DAY FOR 14 DA
     Route: 048

REACTIONS (1)
  - Adverse drug reaction [Unknown]
